FAERS Safety Report 10406163 (Version 2)
Quarter: 2014Q3

REPORT INFORMATION
  Report Type: Spontaneous
  Country: US (occurrence: US)
  Receive Date: 20140825
  Receipt Date: 20140908
  Transmission Date: 20150326
  Serious: No
  Sender: FDA-Public Use
  Company Number: US-BAYER-2014-126567

PATIENT
  Age: 32 Year
  Sex: Female

DRUGS (2)
  1. MIRENA [Suspect]
     Active Substance: LEVONORGESTREL
     Indication: CONTRACEPTION
     Dosage: 20 MCG/24HR, CONT
     Route: 015
     Dates: start: 20140815, end: 20140815
  2. MIRENA [Suspect]
     Active Substance: LEVONORGESTREL
     Indication: CONTRACEPTION
     Dosage: 20 MCG/24HR, CONT
     Route: 015
     Dates: start: 20140815, end: 20140815

REACTIONS (9)
  - Device physical property issue [None]
  - Device difficult to use [None]
  - Complication of device insertion [None]
  - Device breakage [None]
  - Device breakage [None]
  - Complication of device insertion [None]
  - Device physical property issue [None]
  - Procedural pain [None]
  - Multiple use of single-use product [None]

NARRATIVE: CASE EVENT DATE: 20140815
